FAERS Safety Report 4533292-9 (Version None)
Quarter: 2004Q4

REPORT INFORMATION
  Report Type: 
  Country: None (occurrence: None)
  Receive Date: 20041221
  Receipt Date: 20041122
  Transmission Date: 20050328
  Serious: Yes (Other)
  Sender: FDA-Public Use
  Company Number: PHNU2004DE03934

PATIENT
  Age: 28 Year
  Sex: Male

DRUGS (2)
  1. CLOZARIL [Suspect]
     Indication: SCHIZOPHRENIA
     Dosage: 75 MG, QD
     Route: 048
     Dates: start: 19940101
  2. CLOZARIL [Suspect]
     Dosage: 75 MG, QD
     Route: 048

REACTIONS (3)
  - PHOTOPHOBIA [None]
  - SCINTILLATING SCOTOMA [None]
  - VISUAL FIELD TESTS ABNORMAL [None]
